FAERS Safety Report 22255786 (Version 3)
Quarter: 2023Q4

REPORT INFORMATION
  Report Type: Report from Study
  Country: US (occurrence: US)
  Receive Date: 20230426
  Receipt Date: 20231013
  Transmission Date: 20240110
  Serious: Yes (Other)
  Sender: FDA-Public Use
  Company Number: US-ABBVIE-4742657

PATIENT
  Age: 51 Year
  Sex: Female

DRUGS (2)
  1. HUMIRA [Suspect]
     Active Substance: ADALIMUMAB
     Indication: Rheumatoid arthritis
     Dosage: CITRATE FREE, FORM STRENGTH: 40MG
     Route: 058
     Dates: start: 20170111
  2. HUMIRA [Suspect]
     Active Substance: ADALIMUMAB
     Route: 058

REACTIONS (8)
  - Joint effusion [Not Recovered/Not Resolved]
  - Pain [Unknown]
  - Pain [Unknown]
  - Back pain [Unknown]
  - Rheumatoid arthritis [Unknown]
  - Back pain [Not Recovered/Not Resolved]
  - Musculoskeletal discomfort [Unknown]
  - Intervertebral disc injury [Unknown]

NARRATIVE: CASE EVENT DATE: 20221201
